FAERS Safety Report 14915965 (Version 8)
Quarter: 2018Q2

REPORT INFORMATION
  Report Type: Spontaneous
  Country: CO (occurrence: CO)
  Receive Date: 20180518
  Receipt Date: 20180621
  Transmission Date: 20180711
  Serious: Yes (Hospitalization)
  Sender: FDA-Public Use
  Company Number: CO-BIOMARINAP-CO-2018-118336

PATIENT
  Age: 3 Year
  Sex: Male

DRUGS (1)
  1. NAGLAZYME [Suspect]
     Active Substance: GALSULFASE
     Indication: PRODUCT USED FOR UNKNOWN INDICATION
     Dosage: 15 MG, UNK
     Route: 042
     Dates: start: 20160708

REACTIONS (7)
  - Influenza [Unknown]
  - Pyrexia [Unknown]
  - Wheezing [Unknown]
  - Oxygen saturation abnormal [Unknown]
  - Cough [Unknown]
  - Rales [Unknown]
  - Rhonchi [Unknown]
